FAERS Safety Report 6847481-1 (Version None)
Quarter: 2010Q3

REPORT INFORMATION
  Report Type: 
  Country: None (occurrence: None)
  Receive Date: 20100716
  Receipt Date: 20100709
  Transmission Date: 20110219
  Serious: Yes (Hospitalization)
  Sender: FDA-Public Use
  Company Number: GB-PFIZER INC-2008053248

PATIENT
  Age: 63 Year
  Sex: Male

DRUGS (3)
  1. SUNITINIB MALATE [Suspect]
     Indication: RENAL CELL CARCINOMA
     Dosage: 1X/DAY
     Route: 048
     Dates: start: 20080804
  2. MORPHINE SULFATE [Concomitant]
     Indication: ANALGESIC THERAPY
     Dosage: 120 MG, 2X/DAY
  3. OXYCODONE HCL [Concomitant]
     Indication: ANALGESIC THERAPY
     Dosage: 70 MG, 2X/DAY

REACTIONS (1)
  - CONFUSIONAL STATE [None]
